FAERS Safety Report 18950884 (Version 1)
Quarter: 2021Q1

REPORT INFORMATION
  Report Type: Spontaneous
  Country: US (occurrence: US)
  Receive Date: 20210228
  Receipt Date: 20210228
  Transmission Date: 20210420
  Serious: No
  Sender: FDA-Public Use
  Company Number: US-ROCHE-2696256

PATIENT
  Age: 49 Year
  Sex: Female
  Weight: 65.83 kg

DRUGS (12)
  1. ALBUTEROL. [Concomitant]
     Active Substance: ALBUTEROL
     Route: 055
  2. SYMBICORT [Concomitant]
     Active Substance: BUDESONIDE\FORMOTEROL FUMARATE DIHYDRATE
     Dosage: ONGOING?YES, 2 PUFFS TWICE A DAY
     Route: 055
  3. XOLAIR [Suspect]
     Active Substance: OMALIZUMAB
  4. XOLAIR [Suspect]
     Active Substance: OMALIZUMAB
     Indication: ASTHMA
     Dosage: (2?75 MG SYRINGES)
     Route: 058
  5. XOLAIR [Suspect]
     Active Substance: OMALIZUMAB
  6. XOLAIR [Suspect]
     Active Substance: OMALIZUMAB
  7. SINGULAIR [Concomitant]
     Active Substance: MONTELUKAST SODIUM
     Indication: ASTHMA
     Route: 048
  8. CLARINEX [Concomitant]
     Active Substance: DESLORATADINE
     Indication: ASTHMA
     Route: 048
  9. XOLAIR [Suspect]
     Active Substance: OMALIZUMAB
  10. SYMBICORT [Concomitant]
     Active Substance: BUDESONIDE\FORMOTEROL FUMARATE DIHYDRATE
     Indication: ASTHMA
     Dosage: ONGOING?YES, 2 PUFFS TWICE A DAY
     Route: 055
  11. OMEPRAZOLE. [Concomitant]
     Active Substance: OMEPRAZOLE
     Indication: GASTROINTESTINAL DISORDER
  12. XOLAIR [Suspect]
     Active Substance: OMALIZUMAB
     Dosage: 75 MG AND 150 MG
     Route: 058
     Dates: start: 200408

REACTIONS (3)
  - Device issue [Unknown]
  - Product dose omission issue [Unknown]
  - No adverse event [Unknown]

NARRATIVE: CASE EVENT DATE: 20201013
